FAERS Safety Report 12627186 (Version 2)
Quarter: 2016Q3

REPORT INFORMATION
  Report Type: Spontaneous
  Country: DK (occurrence: FR)
  Receive Date: 20160805
  Receipt Date: 20160921
  Transmission Date: 20161109
  Serious: Yes (Hospitalization)
  Sender: FDA-Public Use
  Company Number: FR-FRI-1000086671

PATIENT
  Age: 22 Year
  Sex: Female

DRUGS (9)
  1. NOCERTONE [Suspect]
     Active Substance: OXETORONE
     Indication: PRODUCT USED FOR UNKNOWN INDICATION
     Route: 048
     Dates: start: 20160630, end: 20160630
  2. DOXYLAMINE [Suspect]
     Active Substance: DOXYLAMINE
     Indication: PRODUCT USED FOR UNKNOWN INDICATION
     Route: 048
     Dates: end: 20160630
  3. ESCITALOPRAM [Suspect]
     Active Substance: ESCITALOPRAM OXALATE
     Dosage: OVERDOSE: ESCITALOPRAM 280 MG AT ONCE.
     Route: 048
     Dates: start: 20160630, end: 20160630
  4. KETOPROFENE [Concomitant]
     Active Substance: KETOPROFEN
     Indication: PRODUCT USED FOR UNKNOWN INDICATION
     Route: 048
     Dates: end: 20160630
  5. PARACETAMOL [Concomitant]
     Active Substance: ACETAMINOPHEN
     Indication: PRODUCT USED FOR UNKNOWN INDICATION
     Route: 048
     Dates: start: 20160630, end: 20160630
  6. CODEINE [Suspect]
     Active Substance: CODEINE
     Indication: PRODUCT USED FOR UNKNOWN INDICATION
     Route: 048
     Dates: start: 20160630, end: 20160630
  7. KETOPROFENE [Concomitant]
     Active Substance: KETOPROFEN
     Dosage: OVERDOSE: KETOPROFENE 700 MG AT ONCE.
     Route: 048
     Dates: start: 20160630, end: 20160630
  8. JASMINELLE [Concomitant]
     Active Substance: DROSPIRENONE
     Route: 065
  9. ESCITALOPRAM [Suspect]
     Active Substance: ESCITALOPRAM OXALATE
     Indication: DEPRESSION
     Dosage: 10 MG
     Route: 048
     Dates: end: 20160630

REACTIONS (3)
  - Miosis [Recovered/Resolved]
  - Somnolence [Recovered/Resolved]
  - Dry mouth [Recovered/Resolved]

NARRATIVE: CASE EVENT DATE: 20160630
